FAERS Safety Report 18944279 (Version 1)
Quarter: 2021Q1

REPORT INFORMATION
  Report Type: Spontaneous
  Country: US (occurrence: US)
  Receive Date: 20210225
  Receipt Date: 20210225
  Transmission Date: 20210420
  Serious: No
  Sender: FDA-Public Use
  Company Number: None

PATIENT
  Age: 56 Year
  Sex: Female
  Weight: 111.58 kg

DRUGS (1)
  1. RASUVO [Suspect]
     Active Substance: METHOTREXATE SODIUM
     Indication: RHEUMATOID ARTHRITIS
     Dosage: INJECT :10MG (0.2ML) SUBCUTANEOUSLY EVERYFRIDAY AS DIRECTED (DO NOT TAKE DAILY OR WITH ORAL?
     Route: 058
     Dates: start: 201904

REACTIONS (2)
  - Knee arthroplasty [None]
  - Therapy interrupted [None]
